FAERS Safety Report 15937172 (Version 1)
Quarter: 2019Q1

REPORT INFORMATION
  Report Type: Other
  Country: GB (occurrence: GB)
  Receive Date: 20190208
  Receipt Date: 20190208
  Transmission Date: 20190417
  Serious: Yes (Hospitalization, Disabling, Other)
  Sender: FDA-Public Use
  Company Number: GB-ASPEN-GLO2019GB001004

PATIENT
  Age: 6 Year
  Sex: Female
  Weight: 22.9 kg

DRUGS (7)
  1. DIFFLAM [Concomitant]
     Active Substance: BENZYDAMINE HYDROCHLORIDE
     Indication: PRODUCT USED FOR UNKNOWN INDICATION
     Route: 048
  2. OMEPRAZOLE. [Concomitant]
     Active Substance: OMEPRAZOLE
     Indication: GASTRITIS
     Dosage: 23 MG
     Route: 042
  3. METRONIDAZOLE. [Concomitant]
     Active Substance: METRONIDAZOLE
     Indication: LOWER RESPIRATORY TRACT INFECTION
     Dosage: 171 MG, SINGLE
     Route: 042
     Dates: start: 20190104, end: 20190107
  4. OSELTAMIVIR [Suspect]
     Active Substance: OSELTAMIVIR
     Indication: INFLUENZA
     Dosage: 240 MG, SINGLE
     Route: 042
     Dates: start: 20190104, end: 20190105
  5. CEFTRIAXONE. [Concomitant]
     Active Substance: CEFTRIAXONE
     Indication: LOWER RESPIRATORY TRACT INFECTION
     Route: 042
     Dates: start: 20190104, end: 20190107
  6. DEXAMETHASONE. [Suspect]
     Active Substance: DEXAMETHASONE
     Indication: STRIDOR
     Dosage: 40.6 MG, SINGLE
     Route: 042
     Dates: start: 20190104, end: 20190105
  7. EPINEPHRINE. [Concomitant]
     Active Substance: EPINEPHRINE
     Indication: PRODUCT USED FOR UNKNOWN INDICATION
     Dosage: 5 ML. NASOGASTRIC.
     Route: 065
     Dates: start: 20190104, end: 20190104

REACTIONS (7)
  - Poor quality sleep [Recovered/Resolved]
  - Anxiety [Recovered/Resolved]
  - Off label use [Unknown]
  - Anger [Recovered/Resolved]
  - Emotional distress [Recovered/Resolved]
  - Fear of death [Recovered/Resolved]
  - Abnormal behaviour [Recovered/Resolved]

NARRATIVE: CASE EVENT DATE: 20190104
